FAERS Safety Report 25252330 (Version 2)
Quarter: 2025Q4

REPORT INFORMATION
  Report Type: Spontaneous
  Country: US (occurrence: US)
  Receive Date: 20250429
  Receipt Date: 20251114
  Transmission Date: 20260118
  Serious: Yes (Other)
  Sender: PFIZER
  Company Number: US-PFIZER INC-202500090596

PATIENT
  Age: 83 Year
  Sex: Female

DRUGS (1)
  1. IBRANCE [Suspect]
     Active Substance: PALBOCICLIB
     Dosage: 125 MG 1 TABLET DAILY FOR 21 DAYS ON, 7 DAYS OFF

REACTIONS (2)
  - White blood cell count decreased [Unknown]
  - Chronic obstructive pulmonary disease [Unknown]
